FAERS Safety Report 4877853-6 (Version None)
Quarter: 2006Q1

REPORT INFORMATION
  Report Type: 
  Country: None (occurrence: None)
  Receive Date: 20060111
  Receipt Date: 20051205
  Transmission Date: 20060701
  Serious: Yes (Hospitalization)
  Sender: FDA-Public Use
  Company Number: AU-BRISTOL-MYERS SQUIBB COMPANY-13205893

PATIENT
  Age: 71 Year
  Sex: Male

DRUGS (8)
  1. ABATACEPT [Suspect]
     Indication: RHEUMATOID ARTHRITIS
     Route: 042
     Dates: start: 20040323, end: 20051129
  2. METHOTREXATE [Suspect]
     Indication: RHEUMATOID ARTHRITIS
     Route: 048
     Dates: start: 19980324, end: 20051128
  3. FOLIC ACID [Concomitant]
     Route: 048
     Dates: start: 19971013, end: 20051202
  4. PREDNISOLONE [Concomitant]
     Route: 048
     Dates: start: 20011218, end: 20051202
  5. PIROXICAM [Concomitant]
     Route: 048
     Dates: start: 19971001, end: 20051202
  6. PANTOPRAZOLE [Concomitant]
     Route: 048
     Dates: start: 20020707, end: 20051202
  7. ASCORBIC ACID [Concomitant]
     Route: 048
     Dates: start: 20031006
  8. GENTEAL [Concomitant]
     Route: 047
     Dates: start: 20051122

REACTIONS (1)
  - LYMPHOPROLIFERATIVE DISORDER [None]
